FAERS Safety Report 6142706-2 (Version None)
Quarter: 2009Q2

REPORT INFORMATION
  Report Type: 
  Country: None (occurrence: None)
  Receive Date: 20090403
  Receipt Date: 20090401
  Transmission Date: 20091009
  Serious: Yes (Other)
  Sender: FDA-Public Use
  Company Number: US-BRISTOL-MYERS SQUIBB COMPANY-14558563

PATIENT
  Age: 61 Year

DRUGS (11)
  1. ORENCIA [Suspect]
     Indication: RHEUMATOID ARTHRITIS
     Route: 042
     Dates: start: 20080801
  2. METHOTREXATE [Concomitant]
     Dosage: 2.5MG(5TABLETS)WEEKLY
  3. PLAQUENIL [Concomitant]
  4. PRILOSEC [Concomitant]
  5. FOSAMAX [Concomitant]
  6. LEVOTHROID [Concomitant]
  7. FOLIC ACID [Concomitant]
  8. CALCIUM [Concomitant]
  9. MULTI-VITAMIN [Concomitant]
  10. ASCORBIC ACID [Concomitant]
  11. LOVAZA [Concomitant]

REACTIONS (1)
  - GRAND MAL CONVULSION [None]
